FAERS Safety Report 19963310 (Version 1)
Quarter: 2021Q4

REPORT INFORMATION
  Report Type: Spontaneous
  Country: US (occurrence: US)
  Receive Date: 20211016
  Receipt Date: 20211016
  Transmission Date: 20220303
  Serious: Yes (Other)
  Sender: FDA-Public Use
  Company Number: None

PATIENT
  Age: 50 Year
  Sex: Female
  Weight: 67.5 kg

DRUGS (9)
  1. LEVETIRACETAM [Suspect]
     Active Substance: LEVETIRACETAM
     Indication: Epilepsy
     Dosage: ?          QUANTITY:1 TABLET(S);
     Route: 048
     Dates: start: 20211015, end: 20211015
  2. LEVOTHYROXINE [Concomitant]
     Active Substance: LEVOTHYROXINE
  3. VITAMIN D [Concomitant]
     Active Substance: VITAMIN D NOS
  4. VITAMINS [Concomitant]
     Active Substance: VITAMINS
  5. PRASTERONE [Concomitant]
     Active Substance: PRASTERONE
  6. BIOTIN [Concomitant]
     Active Substance: BIOTIN
  7. VITAMIN C [Concomitant]
     Active Substance: ASCORBIC ACID
  8. COENZYME Q10 [Concomitant]
     Active Substance: DIETARY SUPPLEMENT\UBIDECARENONE
  9. VITAMIN B SUPERCOMPLEX [Concomitant]

REACTIONS (19)
  - Irritability [None]
  - Fatigue [None]
  - Balance disorder [None]
  - Physical disability [None]
  - Dizziness [None]
  - Disorientation [None]
  - Mobility decreased [None]
  - Nausea [None]
  - Taste disorder [None]
  - Vision blurred [None]
  - Headache [None]
  - Disturbance in attention [None]
  - Palpitations [None]
  - Pain [None]
  - Paraesthesia [None]
  - Anxiety [None]
  - Dyspnoea [None]
  - Neck pain [None]
  - Asthenia [None]

NARRATIVE: CASE EVENT DATE: 20211015
